FAERS Safety Report 4346247-4 (Version None)
Quarter: 2004Q1

REPORT INFORMATION
  Report Type: 
  Country: None (occurrence: None)
  Receive Date: 20040325
  Receipt Date: 20040106
  Transmission Date: 20041129
  Serious: No
  Sender: FDA-Public Use
  Company Number: USA040155939

PATIENT
  Age: 72 Year
  Sex: Female

DRUGS (5)
  1. FORTEO [Suspect]
     Indication: OSTEOPOROSIS
     Dosage: 20 UG/DAY
  2. ACTONEL [Concomitant]
  3. VIOXX [Concomitant]
  4. PAXIL [Concomitant]
  5. NEXIUM [Concomitant]

REACTIONS (4)
  - DIZZINESS [None]
  - INSOMNIA [None]
  - MUSCLE CRAMP [None]
  - PAIN IN EXTREMITY [None]
